FAERS Safety Report 13258599 (Version 10)
Quarter: 2019Q1

REPORT INFORMATION
  Report Type: Report from Study
  Country: US (occurrence: US)
  Receive Date: 20170222
  Receipt Date: 20190129
  Transmission Date: 20190417
  Serious: Yes (Other)
  Sender: FDA-Public Use
  Company Number: PHHY2017US024065

PATIENT
  Age: 32 Year
  Sex: Female
  Weight: 62.6 kg

DRUGS (16)
  1. PRENATAL [Concomitant]
     Active Substance: VITAMINS
     Indication: PRODUCT USED FOR UNKNOWN INDICATION
     Dosage: UNK UNK, QD
     Route: 048
     Dates: start: 20150225
  2. OXYCODONE [Concomitant]
     Active Substance: OXYCODONE
     Indication: AFTERBIRTH PAIN
     Dosage: 5 MG, Q6H
     Route: 048
     Dates: start: 20161120, end: 20170106
  3. FLUOXETINE [Concomitant]
     Active Substance: FLUOXETINE HYDROCHLORIDE
     Indication: DEPRESSION
     Dosage: 20 MG, QD
     Route: 048
     Dates: start: 20170106
  4. METHYLPREDNISOLONE. [Concomitant]
     Active Substance: METHYLPREDNISOLONE
     Indication: MULTIPLE SCLEROSIS RELAPSE
     Dosage: UNK
     Route: 065
     Dates: start: 20170915, end: 20170917
  5. PROZAC [Concomitant]
     Active Substance: FLUOXETINE HYDROCHLORIDE
     Indication: PRODUCT USED FOR UNKNOWN INDICATION
     Dosage: 20 MG, QD
     Route: 048
  6. METHYLPREDNISOLONE. [Concomitant]
     Active Substance: METHYLPREDNISOLONE
     Dosage: UNK
     Route: 065
     Dates: start: 20171122, end: 20171122
  7. GILENYA [Suspect]
     Active Substance: FINGOLIMOD HYDROCHLORIDE
     Indication: RELAPSING-REMITTING MULTIPLE SCLEROSIS
     Dosage: 0.5 MG, QD
     Route: 048
     Dates: start: 20170117, end: 20170915
  8. FERROUS SULFATE. [Concomitant]
     Active Substance: FERROUS SULFATE
     Indication: ANAEMIA
     Dosage: 325 MG, QD WITH BREAKFAST
     Route: 048
     Dates: start: 20160717
  9. MOTRIN [Concomitant]
     Active Substance: IBUPROFEN
     Indication: PAIN
     Dosage: 1 DF, Q8H PRN
     Route: 048
  10. DOCUSATE SODIUM. [Concomitant]
     Active Substance: DOCUSATE SODIUM
     Indication: CONSTIPATION
     Dosage: 100 MG, BID
     Route: 048
     Dates: start: 20161120, end: 20170106
  11. LEVONORGESTREL. [Concomitant]
     Active Substance: LEVONORGESTREL
     Indication: CONTRACEPTION
     Dosage: 0.1 MG, QD
     Route: 048
     Dates: start: 20170106
  12. VITAMIN D2 [Concomitant]
     Active Substance: ERGOCALCIFEROL
     Indication: VITAMIN D DEFICIENCY
     Dosage: 1 DF, QW
     Route: 048
     Dates: start: 20150225
  13. ADVIL [Concomitant]
     Active Substance: IBUPROFEN
     Indication: AFTERBIRTH PAIN
     Dosage: 1 DF, Q8H PRN
     Route: 048
     Dates: start: 20161120, end: 20170215
  14. ETHINYLESTRADIOL [Concomitant]
     Active Substance: ETHINYL ESTRADIOL
     Indication: CONTRACEPTION
     Dosage: 20 UG, QD
     Route: 048
     Dates: start: 20170106
  15. DIPHENHYDRAMINE. [Concomitant]
     Active Substance: DIPHENHYDRAMINE
     Indication: PRODUCT USED FOR UNKNOWN INDICATION
     Dosage: UNK
     Route: 065
     Dates: start: 20171122, end: 20171122
  16. ACETAMINOPHEN. [Concomitant]
     Active Substance: ACETAMINOPHEN
     Indication: PRODUCT USED FOR UNKNOWN INDICATION
     Dosage: UNK
     Route: 065
     Dates: start: 20171122, end: 20171122

REACTIONS (23)
  - Lymphocyte count decreased [Unknown]
  - Blood alkaline phosphatase decreased [Unknown]
  - Gluten sensitivity [Unknown]
  - Supraventricular extrasystoles [Unknown]
  - Dysaesthesia [Recovered/Resolved]
  - White blood cell count decreased [Recovered/Resolved]
  - Headache [Recovered/Resolved]
  - Cerumen impaction [Recovered/Resolved]
  - Rhinorrhoea [Recovered/Resolved]
  - Irritability [Unknown]
  - Spinal osteoarthritis [Unknown]
  - Eye pruritus [Unknown]
  - Sinus bradycardia [Recovered/Resolved]
  - Optic neuritis [Recovered/Resolved]
  - Back pain [Unknown]
  - Cognitive disorder [Unknown]
  - Night sweats [Unknown]
  - Ventricular extrasystoles [Unknown]
  - Migraine [Recovered/Resolved]
  - Upper respiratory tract infection [Recovered/Resolved]
  - Visual impairment [Unknown]
  - Feeling abnormal [Recovered/Resolved]
  - Aphasia [Recovered/Resolved]

NARRATIVE: CASE EVENT DATE: 20170117
